FAERS Safety Report 10517645 (Version 1)
Quarter: 2014Q4

REPORT INFORMATION
  Report Type: Spontaneous
  Country: NL (occurrence: NL)
  Receive Date: 20141014
  Receipt Date: 20141014
  Transmission Date: 20150528
  Serious: Yes (Death, Life-Threatening, Hospitalization)
  Sender: FDA-Public Use
  Company Number: NL-MERCK-1410NLD004186

PATIENT
  Age: 80 Year
  Sex: Male
  Weight: 65 kg

DRUGS (2)
  1. SIMVASTATIN. [Suspect]
     Active Substance: SIMVASTATIN
     Indication: AORTIC ANEURYSM
     Dosage: ONCE A DAY 1 PIECE
     Route: 048
     Dates: start: 201212, end: 201403
  2. ACETYLSALICYLZUUR CARDIO CF [Concomitant]
     Dosage: ONCE A DAY 1 PIECE
     Route: 048
     Dates: start: 201212, end: 201401

REACTIONS (2)
  - Pulmonary fibrosis [Fatal]
  - Cardiac failure [Fatal]

NARRATIVE: CASE EVENT DATE: 20140109
